FAERS Safety Report 10173063 (Version 1)
Quarter: 2014Q2

REPORT INFORMATION
  Report Type: Spontaneous
  Country: US (occurrence: US)
  Receive Date: 20140515
  Receipt Date: 20140515
  Transmission Date: 20141212
  Serious: Yes (Hospitalization)
  Sender: FDA-Public Use
  Company Number: US-BAYER-2014-071027

PATIENT
  Age: 32 Year
  Sex: Female
  Weight: 63.95 kg

DRUGS (6)
  1. YAZ [Suspect]
  2. YASMIN [Suspect]
  3. AZELEX [Concomitant]
  4. ROSULA [Concomitant]
  5. CEPHALEXIN [Concomitant]
  6. PERCOCET [Concomitant]
     Indication: PAIN

REACTIONS (1)
  - Pulmonary embolism [None]
